FAERS Safety Report 5429182-X (Version None)
Quarter: 2007Q3

REPORT INFORMATION
  Report Type: 
  Country: None (occurrence: None)
  Receive Date: 20070827
  Receipt Date: 20070812
  Transmission Date: 20080115
  Serious: Yes (Hospitalization)
  Sender: FDA-Public Use
  Company Number: 017122

PATIENT
  Age: 37 Year
  Sex: Female
  Weight: 61.2 kg

DRUGS (4)
  1. SEASONIQUE [Suspect]
     Indication: DYSMENORRHOEA
     Dosage: 1 TABLET, QD, ORAL
     Route: 048
     Dates: start: 20061201, end: 20070201
  2. SEASONIQUE [Suspect]
     Indication: ORAL CONTRACEPTION
     Dosage: 1 TABLET, QD, ORAL
     Route: 048
     Dates: start: 20061201, end: 20070201
  3. HYDROCHLOROTHIAZIDE [Concomitant]
  4. POTASSIUM CHLORIDE [Concomitant]

REACTIONS (7)
  - BACK PAIN [None]
  - BLOOD LACTATE DEHYDROGENASE INCREASED [None]
  - MENOMETRORRHAGIA [None]
  - METRORRHAGIA [None]
  - PELVIC PAIN [None]
  - UTERINE ENLARGEMENT [None]
  - UTERINE LEIOMYOMA [None]
